FAERS Safety Report 18826196 (Version 1)
Quarter: 2021Q1

REPORT INFORMATION
  Report Type: Spontaneous
  Country: US (occurrence: US)
  Receive Date: 20210202
  Receipt Date: 20210202
  Transmission Date: 20210419
  Serious: No
  Sender: FDA-Public Use
  Company Number: US-THE RITEDOSE CORPORATION-2020RIT000138

PATIENT

DRUGS (1)
  1. ALBUTEROL SULFATE INHALATION SOLUTION [Suspect]
     Active Substance: ALBUTEROL SULFATE
     Indication: DYSPNOEA
     Dosage: UNK
     Route: 055

REACTIONS (9)
  - Throat irritation [Unknown]
  - Product prescribing error [Unknown]
  - Dysphagia [Unknown]
  - Suspected counterfeit product [Unknown]
  - Weight decreased [Unknown]
  - Pulmonary pain [Unknown]
  - Hypertension [Unknown]
  - Drug ineffective [Unknown]
  - Pain [Unknown]
